FAERS Safety Report 20866897 (Version 1)
Quarter: 2022Q2

REPORT INFORMATION
  Report Type: Spontaneous
  Country: ES (occurrence: ES)
  Receive Date: 20220524
  Receipt Date: 20220524
  Transmission Date: 20220720
  Serious: Yes (Other)
  Sender: FDA-Public Use
  Company Number: None

PATIENT
  Age: 43 Year
  Sex: Female

DRUGS (1)
  1. CETIRIZINE [Suspect]
     Active Substance: CETIRIZINE HYDROCHLORIDE
     Indication: Rhinitis allergic
     Dosage: 10 MILLIGRAM
     Route: 048
     Dates: start: 20220403, end: 20220403

REACTIONS (3)
  - Palatal oedema [Unknown]
  - Dysphagia [Unknown]
  - Rash [Unknown]

NARRATIVE: CASE EVENT DATE: 20220403
